FAERS Safety Report 4402940-6 (Version None)
Quarter: 2004Q3

REPORT INFORMATION
  Report Type: 
  Country: None (occurrence: None)
  Receive Date: 20040721
  Receipt Date: 20030702
  Transmission Date: 20050211
  Serious: Yes (Other)
  Sender: FDA-Public Use
  Company Number: US-GLAXOSMITHKLINE-A0415246A

PATIENT
  Age: 40 Year
  Sex: Female

DRUGS (11)
  1. IMITREX [Suspect]
     Indication: MIGRAINE
     Route: 048
  2. REBIF [Concomitant]
  3. DEPAKOTE [Concomitant]
     Indication: MIGRAINE
  4. PREVACID [Concomitant]
  5. FLORINEF [Concomitant]
  6. PINDOLOL [Concomitant]
  7. SERZONE [Concomitant]
  8. LASIX [Concomitant]
  9. LIPITOR [Concomitant]
  10. POTASSIUM [Concomitant]
  11. AMITRIPTYLINE HCL [Concomitant]

REACTIONS (4)
  - ANAPHYLACTIC SHOCK [None]
  - OROPHARYNGEAL SWELLING [None]
  - TINNITUS [None]
  - URTICARIA [None]
